FAERS Safety Report 4689450-6 (Version None)
Quarter: 2005Q2

REPORT INFORMATION
  Report Type: 
  Country: None (occurrence: None)
  Receive Date: 20050311
  Receipt Date: 20050311
  Transmission Date: 20051028
  Serious: No
  Sender: FDA-Public Use
  Company Number: None

PATIENT
  Sex: Female
  Weight: 58.0604 kg

DRUGS (2)
  1. CYLERT [Suspect]
     Indication: ATTENTION DEFICIT/HYPERACTIVITY DISORDER
     Dosage: 5 1/2 MG 2 1/2 Q AM +1 Q NOON
     Dates: start: 20041109
  2. CYLERT [Suspect]
     Indication: AUTISM
     Dosage: 5 1/2 MG 2 1/2 Q AM +1 Q NOON
     Dates: start: 20041109

REACTIONS (5)
  - AGITATION [None]
  - APHAGIA [None]
  - FEELING JITTERY [None]
  - PHARMACEUTICAL PRODUCT COMPLAINT [None]
  - REBOUND EFFECT [None]
